FAERS Safety Report 24351425 (Version 1)
Quarter: 2024Q3

REPORT INFORMATION
  Report Type: Report from Study
  Country: US (occurrence: US)
  Receive Date: 20240923
  Receipt Date: 20240923
  Transmission Date: 20241016
  Serious: No
  Sender: ROCHE
  Company Number: US-ROCHE-3544885

PATIENT
  Age: 51 Year
  Sex: Female

DRUGS (2)
  1. HERCEPTIN [Suspect]
     Active Substance: TRASTUZUMAB
     Indication: Breast cancer metastatic
     Dosage: SUBSEQUENT DOSES OF TRASTUZUMAB: 21/FEB/2024, 28/FEB/2024, 06/MAR/2024, 13/MAR/2024
     Route: 042
  2. CISPLATIN [Concomitant]
     Active Substance: CISPLATIN

REACTIONS (3)
  - Diarrhoea [Unknown]
  - Nausea [Unknown]
  - Hypokalaemia [Unknown]
